FAERS Safety Report 13213693 (Version 2)
Quarter: 2017Q1

REPORT INFORMATION
  Report Type: Spontaneous
  Country: IT (occurrence: IT)
  Receive Date: 20170210
  Receipt Date: 20170330
  Transmission Date: 20170428
  Serious: Yes (Hospitalization)
  Sender: FDA-Public Use
  Company Number: IT-MYLANLABS-2016M1055352

PATIENT

DRUGS (2)
  1. LORAZEPAM. [Suspect]
     Active Substance: LORAZEPAM
     Indication: ANXIETY
     Dosage: 80 MG, TOTAL
     Route: 048
     Dates: start: 20161130, end: 20161130
  2. CONTRAMAL [Suspect]
     Active Substance: TRAMADOL HYDROCHLORIDE
     Indication: PAIN
     Dosage: 10 DF, TOTAL
     Route: 030
     Dates: start: 20161130, end: 20161130

REACTIONS (4)
  - Overdose [Unknown]
  - Bradykinesia [Unknown]
  - Bradyphrenia [Unknown]
  - Intentional self-injury [Unknown]

NARRATIVE: CASE EVENT DATE: 20161130
